FAERS Safety Report 5262190-0 (Version None)
Quarter: 2007Q1

REPORT INFORMATION
  Report Type: 
  Country: None (occurrence: None)
  Receive Date: 20070311
  Receipt Date: 20070228
  Transmission Date: 20070707
  Serious: No
  Sender: FDA-Public Use
  Company Number: 2006UW08126

PATIENT
  Sex: Male
  Weight: 109.1 kg

DRUGS (5)
  1. SEROQUEL [Suspect]
     Indication: BIPOLAR DISORDER
     Dosage: 100 MG
     Route: 048
     Dates: start: 20030101, end: 20050101
  2. SEROQUEL [Suspect]
     Indication: BIPOLAR I DISORDER
     Dosage: 100 MG
     Route: 048
     Dates: start: 20030101, end: 20050101
  3. GEODON [Concomitant]
  4. HALDOL [Concomitant]
     Dosage: 5 MG
  5. RISPERDAL [Concomitant]

REACTIONS (1)
  - DIABETES MELLITUS [None]
